FAERS Safety Report 4518261-7 (Version None)
Quarter: 2004Q4

REPORT INFORMATION
  Report Type: 
  Country: None (occurrence: None)
  Receive Date: 20041130
  Receipt Date: 20040526
  Transmission Date: 20050328
  Serious: Yes (Hospitalization)
  Sender: FDA-Public Use
  Company Number: 04-000814

PATIENT
  Sex: Female

DRUGS (1)
  1. DORYX [Suspect]
     Indication: ACNE
     Dosage: ORAL
     Route: 048

REACTIONS (2)
  - EROSIVE OESOPHAGITIS [None]
  - THROAT IRRITATION [None]
